FAERS Safety Report 5689490-4 (Version None)
Quarter: 2008Q1

REPORT INFORMATION
  Report Type: 
  Country: None (occurrence: None)
  Receive Date: 20080331
  Receipt Date: 20080319
  Transmission Date: 20080703
  Serious: Yes (Death)
  Sender: FDA-Public Use
  Company Number: SE-PFIZER INC-2008025743

PATIENT
  Age: 90 Year
  Sex: Male

DRUGS (2)
  1. ARTHROTEC [Suspect]
  2. MORPHINE [Concomitant]

REACTIONS (1)
  - SEPSIS [None]
